FAERS Safety Report 20404695 (Version 1)
Quarter: 2022Q1

REPORT INFORMATION
  Report Type: Spontaneous
  Country: DE (occurrence: DE)
  Receive Date: 20220131
  Receipt Date: 20220131
  Transmission Date: 20220424
  Serious: Yes (Hospitalization)
  Sender: FDA-Public Use
  Company Number: None

PATIENT
  Age: 66 Year
  Sex: Female
  Weight: 70 kg

DRUGS (13)
  1. FLUOROURACIL [Suspect]
     Active Substance: FLUOROURACIL
     Indication: Product used for unknown indication
     Dosage: ACCORDING TO THE SCHEME MAY 26TH, SOLUTION FOR INJECTION/INFUSION
     Route: 042
  2. IRINOTECAN [Suspect]
     Active Substance: IRINOTECAN
     Indication: Product used for unknown indication
     Dosage: ACCORDING TO THE SCHEME MAY 26TH, SOLUTION FOR INJECTION/INFUSION
     Route: 042
  3. OXALIPLATIN [Suspect]
     Active Substance: OXALIPLATIN
     Indication: Product used for unknown indication
     Dosage: ACCORDING TO SCHEDULE MAY 26TH, SOLUTION FOR INJECTION/INFUSION
     Route: 042
  4. POTASSIUM CHLORIDE W/SODIUM CHLORID [Concomitant]
     Dosage: 1-0-0-0, SACHET
     Route: 048
  5. MCP-RATIOPHARM [Concomitant]
     Active Substance: METOCLOPRAMIDE HYDROCHLORIDE
     Dosage: STRENGTH: 10 MG,10 MG, 1-1-1-0, TABLETS
     Route: 048
  6. PANTOPRAZOLE [Concomitant]
     Active Substance: PANTOPRAZOLE
     Dosage: STRENGTH: 40 MG, 1-0-1-0, TABLETS
     Route: 048
  7. CARBIMAZOLE [Concomitant]
     Active Substance: CARBIMAZOLE
     Dosage: 10 MG, 1-0-1-0, TABLETS
     Route: 048
  8. APIXABAN [Concomitant]
     Active Substance: APIXABAN
     Dosage: 2.5 MG, 1-0-1-0, TABLETS
     Route: 048
  9. ALLOPURINOL [Concomitant]
     Active Substance: ALLOPURINOL
     Dosage: 100 MG, 1-0-0-0, TABLETS
     Route: 048
  10. CALCIUM CHLORIDE, SODIUM PHOSPHATE [Concomitant]
     Dosage: 1-1-1-1, SACHET
     Route: 048
  11. KALINOR-RETARD P [Concomitant]
     Dosage: STRENGTH: 600 MG, 2-2-2-0, CAPSULES
     Route: 048
  12. ONDANSETRON [Concomitant]
     Active Substance: ONDANSETRON
     Dosage: STRENGTH: 4 MG,  2-0-2-0, ORODISPERSIBLE TABLETS
     Route: 048
  13. HYDROMORPHONE HYDROCHLORIDE [Concomitant]
     Active Substance: HYDROMORPHONE HYDROCHLORIDE
     Dosage: 4 MG, 1-0-1-0, CAPSULES
     Route: 048

REACTIONS (5)
  - Vomiting [Unknown]
  - Leukopenia [Unknown]
  - Nausea [Unknown]
  - Hypokalaemia [Unknown]
  - General physical health deterioration [Unknown]
